FAERS Safety Report 10794013 (Version 6)
Quarter: 2015Q3

REPORT INFORMATION
  Report Type: Report from Study
  Country: US (occurrence: US)
  Receive Date: 20150213
  Receipt Date: 20150818
  Transmission Date: 20151125
  Serious: Yes (Hospitalization, Other)
  Sender: FDA-Public Use
  Company Number: US-ALEXION PHARMACEUTICALS INC.-A201500464

PATIENT
  Age: 30 Year
  Sex: Female

DRUGS (1)
  1. ECULIZUMAB [Suspect]
     Active Substance: ECULIZUMAB
     Indication: HAEMOLYTIC URAEMIC SYNDROME
     Dosage: UNK
     Route: 042
     Dates: start: 20150206

REACTIONS (5)
  - Foetal growth restriction [Recovering/Resolving]
  - Renal pain [Unknown]
  - Exposure during pregnancy [Unknown]
  - Unevaluable event [Unknown]
  - Vomiting [Unknown]

NARRATIVE: CASE EVENT DATE: 20150203
